FAERS Safety Report 12802275 (Version 1)
Quarter: 2016Q4

REPORT INFORMATION
  Report Type: Spontaneous
  Country: US (occurrence: US)
  Receive Date: 20161003
  Receipt Date: 20161003
  Transmission Date: 20170207
  Serious: No
  Sender: FDA-Public Use
  Company Number: US-JAZZ-2016-US-012451

PATIENT
  Sex: Female

DRUGS (23)
  1. MORPHINE SULF [Concomitant]
     Active Substance: MORPHINE SULFATE
  2. PRENATAL [Concomitant]
     Active Substance: VITAMINS
  3. DHEA [Concomitant]
     Active Substance: PRASTERONE
  4. ADVIL [Concomitant]
     Active Substance: IBUPROFEN
  5. NORCO [Suspect]
     Active Substance: ACETAMINOPHEN\HYDROCODONE BITARTRATE
     Indication: PRODUCT USED FOR UNKNOWN INDICATION
     Dosage: UNK
     Dates: start: 20030725, end: 20160404
  6. FISH OIL [Concomitant]
     Active Substance: FISH OIL
  7. MELATONIN [Concomitant]
     Active Substance: MELATONIN
  8. EFFEXOR [Concomitant]
     Active Substance: VENLAFAXINE HYDROCHLORIDE
  9. DOXEPIN [Concomitant]
     Active Substance: DOXEPIN
  10. ACETAMINOPHEN. [Concomitant]
     Active Substance: ACETAMINOPHEN
  11. CLONIDINE HCL [Concomitant]
     Active Substance: CLONIDINE HYDROCHLORIDE
  12. REQUIP [Concomitant]
     Active Substance: ROPINIROLE HYDROCHLORIDE
  13. XYREM [Suspect]
     Active Substance: SODIUM OXYBATE
     Indication: NARCOLEPSY
     Dosage: 4.5 G, BID
     Route: 048
     Dates: start: 201309
  14. RISPERDAL [Concomitant]
     Active Substance: RISPERIDONE
  15. FERROUS SULFATE. [Concomitant]
     Active Substance: FERROUS SULFATE
  16. XYREM [Suspect]
     Active Substance: SODIUM OXYBATE
     Indication: CATAPLEXY
  17. KADIAN [Concomitant]
     Active Substance: MORPHINE SULFATE
  18. BACLOFEN. [Concomitant]
     Active Substance: BACLOFEN
  19. CELEXA [Concomitant]
     Active Substance: CITALOPRAM HYDROBROMIDE
  20. VITAMIN B COMPLEX [Concomitant]
     Active Substance: CYANOCOBALAMIN\DEXPANTHENOL\NIACINAMIDE\PYRIDOXINE HYDROCHLORIDE\RIBOFLAVIN 5^-PHOSPHATE SODIUM\THIAMINE HYDROCHLORIDE\VITAMIN B COMPLEX
  21. LIDODERM [Concomitant]
     Active Substance: LIDOCAINE
  22. XANAX [Concomitant]
     Active Substance: ALPRAZOLAM
  23. BUTRANS [Concomitant]
     Active Substance: BUPRENORPHINE

REACTIONS (1)
  - Drug ineffective [Unknown]
